FAERS Safety Report 5612450-6 (Version None)
Quarter: 2008Q1

REPORT INFORMATION
  Report Type: 
  Country: None (occurrence: None)
  Receive Date: 20080204
  Receipt Date: 20080124
  Transmission Date: 20080703
  Serious: Yes (Hospitalization, Other)
  Sender: FDA-Public Use
  Company Number: US-BAYER-200811735NA

PATIENT
  Age: 58 Year
  Sex: Male
  Weight: 76 kg

DRUGS (17)
  1. CAMPATH [Suspect]
     Indication: CHRONIC LYMPHOCYTIC LEUKAEMIA
     Dosage: TOTAL DAILY DOSE: 10 MG
     Route: 058
  2. CAMPATH [Suspect]
     Dosage: TOTAL DAILY DOSE: 3 MG
     Route: 058
     Dates: start: 20070402
  3. CAMPATH [Suspect]
     Dosage: TOTAL DAILY DOSE: 30 MG
     Route: 058
  4. FLUDARABINE PHOSPHATE [Suspect]
     Indication: CHRONIC LYMPHOCYTIC LEUKAEMIA
     Dosage: AS USED: 25 MG/M2
     Route: 042
     Dates: start: 20060601, end: 20061101
  5. RITUXIMAB [Suspect]
     Indication: CHRONIC LYMPHOCYTIC LEUKAEMIA
     Dosage: AS USED: 325 MG/M2
     Route: 042
  6. RITUXIMAB [Suspect]
     Dosage: AS USED: 375 MG/M2
     Route: 042
  7. RITUXIMAB [Suspect]
     Dosage: AS USED: 50 MG/M2
     Route: 042
     Dates: start: 20060601, end: 20061101
  8. PENTAMADINE INHALATION [Concomitant]
     Route: 055
  9. VALACYCLOVIR [Concomitant]
     Dosage: TOTAL DAILY DOSE: 500 MG
     Route: 048
  10. MULTI-VITAMIN [Concomitant]
  11. SAW PALMETTO [Concomitant]
  12. ZOFRAN [Concomitant]
     Route: 048
  13. ZANTAC [Concomitant]
     Dosage: TOTAL DAILY DOSE: 150 MG
     Route: 048
  14. VORICONAZOLE [Concomitant]
     Dosage: TOTAL DAILY DOSE: 1000 MG
     Route: 048
  15. ATOVAQUONE [Concomitant]
     Dosage: TOTAL DAILY DOSE: 1500 MG
     Route: 048
  16. MUCINEX [Concomitant]
     Indication: RESPIRATORY TRACT CONGESTION
     Dosage: TOTAL DAILY DOSE: 1200 MG
     Route: 048
  17. TESSALON [Concomitant]
     Dosage: TOTAL DAILY DOSE: 300 MG
     Route: 048

REACTIONS (4)
  - FEBRILE NEUTROPENIA [None]
  - HYPONATRAEMIA [None]
  - NAUSEA [None]
  - PNEUMONIA FUNGAL [None]
